FAERS Safety Report 8990922 (Version 1)
Quarter: 2012Q4

REPORT INFORMATION
  Report Type: Spontaneous
  Country: US (occurrence: None)
  Receive Date: 20121227
  Receipt Date: 20121227
  Transmission Date: 20130627
  Serious: Yes (Other)
  Sender: FDA-Public Use
  Company Number: None

PATIENT
  Age: 42 Year
  Sex: Female
  Weight: 67.59 kg

DRUGS (1)
  1. CIPROFLOXACIN [Suspect]
     Indication: UTI
     Dosage: 1tablet  2 x Aday  po
     Route: 048
     Dates: start: 20121210, end: 20121211

REACTIONS (16)
  - Dizziness [None]
  - Eye pain [None]
  - Polydipsia [None]
  - Pain in extremity [None]
  - Pain in extremity [None]
  - Musculoskeletal stiffness [None]
  - Musculoskeletal stiffness [None]
  - Arthralgia [None]
  - Oedema peripheral [None]
  - Arthralgia [None]
  - Arthralgia [None]
  - Arthralgia [None]
  - Musculoskeletal pain [None]
  - Pain in extremity [None]
  - Myalgia [None]
  - Joint crepitation [None]
